FAERS Safety Report 5673995-6 (Version None)
Quarter: 2008Q1

REPORT INFORMATION
  Report Type: 
  Country: None (occurrence: None)
  Receive Date: 20080320
  Receipt Date: 20080317
  Transmission Date: 20080703
  Serious: Yes (Other)
  Sender: FDA-Public Use
  Company Number: SE-RANBAXY-2008US-13832

PATIENT

DRUGS (3)
  1. ISOPTIN SR [Suspect]
     Indication: DRUG USE FOR UNKNOWN INDICATION
     Dosage: UNK, UNK
     Route: 048
  2. UNKNOWN [Suspect]
     Indication: DRUG USE FOR UNKNOWN INDICATION
  3. UNKNOWN [Suspect]

REACTIONS (2)
  - BRADYCARDIA [None]
  - RENAL FAILURE [None]
